FAERS Safety Report 10736906 (Version 1)
Quarter: 2015Q1

REPORT INFORMATION
  Report Type: Spontaneous
  Country: IT (occurrence: IT)
  Receive Date: 20150126
  Receipt Date: 20150126
  Transmission Date: 20150721
  Serious: Yes (Hospitalization)
  Sender: FDA-Public Use
  Company Number: IT-BAYER-2015-009963

PATIENT
  Age: 85 Year
  Sex: Female

DRUGS (4)
  1. ULTRAVIST [Suspect]
     Active Substance: IOPROMIDE
     Indication: INSERTION OF AMBULATORY PERITONEAL CATHETER
     Dosage: 6 ML, ONCE
     Route: 042
     Dates: start: 20141118, end: 20141118
  2. CEFAZOLIN [Suspect]
     Active Substance: CEFAZOLIN
     Indication: INSERTION OF AMBULATORY PERITONEAL CATHETER
     Dosage: 1 DF, ONCE
     Route: 042
     Dates: start: 20141118, end: 20141118
  3. FUROSEMIDE. [Concomitant]
     Active Substance: FUROSEMIDE
     Route: 042
  4. MIDAZOLAM [Suspect]
     Active Substance: MIDAZOLAM\MIDAZOLAM HYDROCHLORIDE
     Indication: INSERTION OF AMBULATORY PERITONEAL CATHETER
     Dosage: 1 DF, ONCE
     Route: 042
     Dates: start: 20141118, end: 20141118

REACTIONS (2)
  - Tongue oedema [Recovered/Resolved]
  - Bronchostenosis [Recovered/Resolved]

NARRATIVE: CASE EVENT DATE: 20141118
